FAERS Safety Report 7308043-5 (Version None)
Quarter: 2011Q1

REPORT INFORMATION
  Report Type: 
  Country: None (occurrence: None)
  Receive Date: 20110223
  Receipt Date: 20100928
  Transmission Date: 20110831
  Serious: Yes (Hospitalization)
  Sender: FDA-Public Use
  Company Number: US-BAYER-201033587NA

PATIENT
  Sex: Female
  Weight: 102.49 kg

DRUGS (4)
  1. NAPROXEN [Concomitant]
  2. YASMIN [Suspect]
     Indication: ACNE
     Dosage: UNK
     Dates: start: 20031101, end: 20040201
  3. YAZ [Suspect]
     Indication: ACNE
  4. OCELLA [Suspect]
     Indication: ACNE

REACTIONS (7)
  - PAIN IN EXTREMITY [None]
  - PULMONARY EMBOLISM [None]
  - DEEP VEIN THROMBOSIS [None]
  - CHEST PAIN [None]
  - DYSPNOEA [None]
  - PULMONARY HYPERTENSION [None]
  - OEDEMA PERIPHERAL [None]
